FAERS Safety Report 9337420 (Version 1)
Quarter: 2013Q2

REPORT INFORMATION
  Report Type: Other
  Country: GB (occurrence: GB)
  Receive Date: 20130607
  Receipt Date: 20130607
  Transmission Date: 20140414
  Serious: Yes (Disabling)
  Sender: FDA-Public Use
  Company Number: GB-WATSON-2013-09729

PATIENT
  Age: 56 Year
  Sex: Female
  Weight: 78 kg

DRUGS (5)
  1. OMEPRAZOLE (UNKNOWN) [Suspect]
     Indication: GASTROOESOPHAGEAL REFLUX DISEASE
     Dosage: 20 MG, UNKNOWN. STARTED 3 YEARS AGO
     Route: 048
     Dates: start: 2010, end: 20120930
  2. LISINOPRIL (UNKNOWN) [Suspect]
     Indication: HYPERTENSION
     Dosage: 40 MG, UNKNOWN. DOSE INCREASED FROM 20MG TO 40MG.
     Route: 048
     Dates: start: 20120930
  3. LISINOPRIL (UNKNOWN) [Suspect]
     Dosage: 20 MG, UNKNOWN. STARTED 4 YEARS AGO. DOSE INCREASED FROM 20MG TO 40MG.
     Route: 048
     Dates: start: 2009, end: 20120930
  4. LEVOTHYROXINE [Suspect]
     Indication: PRODUCT USED FOR UNKNOWN INDICATION
     Dosage: 100 MCG, UNKNOWN
     Route: 065
  5. VITAMIN D                          /00107901/ [Concomitant]
     Indication: VITAMIN D DEFICIENCY
     Dosage: 10000 IU INTERNATIONAL UNIT(S)
     Route: 048
     Dates: start: 201203, end: 201206

REACTIONS (5)
  - Arthralgia [Recovering/Resolving]
  - Muscular weakness [Recovering/Resolving]
  - Malaise [Recovering/Resolving]
  - Dyspnoea [Recovering/Resolving]
  - Drug interaction [Unknown]
